FAERS Safety Report 5133122-0 (Version None)
Quarter: 2006Q4

REPORT INFORMATION
  Report Type: 
  Country: None (occurrence: None)
  Receive Date: 20061017
  Receipt Date: 20061004
  Transmission Date: 20070319
  Serious: Yes (Hospitalization, Disabling, Other)
  Sender: FDA-Public Use
  Company Number: 2006123225

PATIENT
  Age: 54 Year
  Sex: Female

DRUGS (6)
  1. CELEBREX [Suspect]
     Dosage: ORAL
     Route: 048
     Dates: start: 20020201, end: 20040401
  2. VIOXX [Suspect]
     Dosage: ORAL
     Route: 048
     Dates: start: 20020201, end: 20040401
  3. ALBYL-E (ACETYLSALICYLIC ACID, MAGNESIUM OXIDE) [Concomitant]
  4. METOPROLOL SUCCINATE [Concomitant]
  5. FUROSEMIDE [Concomitant]
  6. ZOMIG [Concomitant]

REACTIONS (14)
  - ATRIAL FIBRILLATION [None]
  - DEEP VEIN THROMBOSIS [None]
  - DIZZINESS [None]
  - DRUG INEFFECTIVE [None]
  - DYSPNOEA [None]
  - FATIGUE [None]
  - GAIT DISTURBANCE [None]
  - LACUNAR INFARCTION [None]
  - MALAISE [None]
  - PAIN [None]
  - PARESIS [None]
  - PERFORMANCE FEAR [None]
  - SPEECH DISORDER [None]
  - SYNCOPE [None]
